FAERS Safety Report 9643325 (Version 3)
Quarter: 2014Q2

REPORT INFORMATION
  Report Type: Spontaneous
  Country: US (occurrence: None)
  Receive Date: 20131022
  Receipt Date: 20140407
  Transmission Date: 20141212
  Serious: Yes (Other)
  Sender: FDA-Public Use
  Company Number: 2013-US-001851

PATIENT
  Age: 41 Year
  Sex: Female
  Weight: 79.4 kg

DRUGS (4)
  1. XYREM [Suspect]
     Indication: SLEEP DISORDER
     Route: 048
     Dates: start: 20051020
  2. SEROQUEL (QUETIAPINE FUMARATE) [Concomitant]
  3. GABATRII (TIAGABINE HYDROCHLORIDE) [Concomitant]
  4. ALL OTHER THERAPEUTIC PRODUCTS [Concomitant]

REACTIONS (4)
  - Plantar fasciitis [None]
  - Condition aggravated [None]
  - Ligament rupture [None]
  - Off label use [None]
